FAERS Safety Report 26102369 (Version 1)
Quarter: 2025Q4

REPORT INFORMATION
  Report Type: Spontaneous
  Country: JP (occurrence: JP)
  Receive Date: 20251128
  Receipt Date: 20251128
  Transmission Date: 20260118
  Serious: Yes (Hospitalization, Other)
  Sender: MERCK SHARP & DOHME LLC
  Company Number: JP-009507513-2353913

PATIENT
  Age: 80 Year
  Sex: Female
  Weight: 41 kg

DRUGS (4)
  1. KEYTRUDA [Suspect]
     Active Substance: PEMBROLIZUMAB
     Indication: PD-L1 positive cancer
     Dosage: 200MG ? 1/3 WEEKS, 3 COURSES
     Route: 041
     Dates: start: 2025, end: 202511
  2. CAPECITABINE [Suspect]
     Active Substance: CAPECITABINE
     Indication: HER2 positive gastric cancer
     Route: 048
     Dates: start: 2025, end: 202511
  3. OXALIPLATIN [Suspect]
     Active Substance: OXALIPLATIN
     Indication: HER2 positive gastric cancer
     Route: 041
     Dates: start: 2025, end: 202511
  4. TRASTUZUMAB [Suspect]
     Active Substance: TRASTUZUMAB
     Indication: HER2 positive gastric cancer
     Dates: start: 2025

REACTIONS (7)
  - Immune-mediated hepatic disorder [Recovered/Resolved]
  - Cardiomegaly [Unknown]
  - General physical health deterioration [Unknown]
  - Therapy partial responder [Unknown]
  - Electrolyte imbalance [Recovered/Resolved]
  - Diarrhoea [Recovered/Resolved]
  - Drug-induced liver injury [Recovered/Resolved]

NARRATIVE: CASE EVENT DATE: 20250101
